FAERS Safety Report 24360672 (Version 4)
Quarter: 2025Q2

REPORT INFORMATION
  Report Type: Spontaneous
  Country: US (occurrence: US)
  Receive Date: 20240925
  Receipt Date: 20250416
  Transmission Date: 20250716
  Serious: Yes (Hospitalization)
  Sender: TEVA
  Company Number: US-TEVA-VS-3246072

PATIENT
  Age: 67 Year
  Sex: Male

DRUGS (3)
  1. AZACITIDINE [Suspect]
     Active Substance: AZACITIDINE
     Indication: Chronic myelomonocytic leukaemia
     Route: 065
     Dates: start: 20240405
  2. NEULASTA [Suspect]
     Active Substance: PEGFILGRASTIM
     Indication: Febrile neutropenia
     Route: 065
     Dates: start: 20240408
  3. VENETOCLAX [Suspect]
     Active Substance: VENETOCLAX
     Indication: Chronic myelomonocytic leukaemia
     Route: 065
     Dates: start: 20240405

REACTIONS (2)
  - Splenic infarction [Unknown]
  - Hepatosplenomegaly [Unknown]

NARRATIVE: CASE EVENT DATE: 20240401
